FAERS Safety Report 6576016-6 (Version None)
Quarter: 2010Q1

REPORT INFORMATION
  Report Type: 
  Country: None (occurrence: None)
  Receive Date: 20100209
  Receipt Date: 20100127
  Transmission Date: 20100710
  Serious: Yes (Other)
  Sender: FDA-Public Use
  Company Number: PHHY2010BR04526

PATIENT
  Sex: Female

DRUGS (2)
  1. DIOVAN [Suspect]
     Indication: BLOOD PRESSURE
     Dosage: 160/5/12.5 MG
  2. NEBILET [Concomitant]
     Dosage: 1 TABLET (5 MG) DAILY
     Route: 048

REACTIONS (3)
  - HEADACHE [None]
  - HYPERTENSION [None]
  - WART EXCISION [None]
